FAERS Safety Report 6367948-2 (Version None)
Quarter: 2009Q3

REPORT INFORMATION
  Report Type: 
  Country: None (occurrence: None)
  Receive Date: 20090922
  Receipt Date: 20090520
  Transmission Date: 20100115
  Serious: No
  Sender: FDA-Public Use
  Company Number: A0780324A

PATIENT
  Age: 68 Year
  Sex: Female

DRUGS (14)
  1. SEREVENT [Suspect]
     Indication: ASTHMA
     Dosage: 50MCG TWICE PER DAY
     Route: 055
  2. COMBIVENT [Concomitant]
     Indication: ASTHMA
     Dates: start: 20050101
  3. METOPROLOL TARTRATE [Concomitant]
     Indication: HYPERTENSION
     Dosage: 50MG TWICE PER DAY
     Route: 048
     Dates: start: 20020101
  4. CLONIDINE [Concomitant]
     Indication: HYPERTENSION
     Dosage: .3MG THREE TIMES PER DAY
     Route: 048
  5. PROTON PUMP INHIBITOR [Concomitant]
  6. GLIPIZIDE [Concomitant]
     Dosage: 2.5MG PER DAY
     Dates: start: 20020101
  7. RENAGEL [Concomitant]
     Dosage: 800MG SIX TIMES PER DAY
     Route: 048
     Dates: start: 20040101
  8. HECTOROL [Concomitant]
  9. NEPHRO CAP [Concomitant]
     Dates: start: 20020101
  10. NEXIUM [Concomitant]
     Dosage: 30MG PER DAY
     Dates: start: 20030101
  11. PAROXETINE HCL [Concomitant]
     Indication: DEPRESSION
     Dosage: 40MG PER DAY
     Route: 048
     Dates: start: 20080219
  12. AMLODIPINE [Concomitant]
     Dosage: 10MG PER DAY
     Route: 048
     Dates: start: 20060101
  13. OTHER MEDICATIONS [Concomitant]
  14. HYDRALAZINE HCL [Concomitant]
     Indication: HYPERTENSION
     Dosage: 100MG THREE TIMES PER DAY
     Route: 048
     Dates: start: 20080101

REACTIONS (3)
  - DYSPNOEA [None]
  - PRODUCT QUALITY ISSUE [None]
  - RESPIRATORY DISORDER [None]
